FAERS Safety Report 20674633 (Version 1)
Quarter: 2022Q2

REPORT INFORMATION
  Report Type: Spontaneous
  Country: CN (occurrence: CN)
  Receive Date: 20220405
  Receipt Date: 20220405
  Transmission Date: 20220720
  Serious: Yes (Other)
  Sender: FDA-Public Use
  Company Number: CN-GRUNENTHAL-2022-102649

PATIENT
  Age: 34 Year
  Sex: Male
  Weight: 70 kg

DRUGS (2)
  1. TRAMADOL HYDROCHLORIDE [Suspect]
     Active Substance: TRAMADOL HYDROCHLORIDE
     Indication: Analgesic therapy
     Dosage: 0.1 GRAM, 1/DAY
     Route: 030
     Dates: start: 20220313, end: 20220313
  2. TRAMADOL HYDROCHLORIDE [Suspect]
     Active Substance: TRAMADOL HYDROCHLORIDE
     Dosage: 0.1 GRAM, 1/DAY
     Route: 030
     Dates: start: 20220323, end: 20220323

REACTIONS (3)
  - Injection site rash [Recovered/Resolved]
  - Injection site induration [Recovered/Resolved]
  - Rash [Recovered/Resolved]

NARRATIVE: CASE EVENT DATE: 20220323
